FAERS Safety Report 9514976 (Version 1)
Quarter: 2013Q1

REPORT INFORMATION
  Report Type: Spontaneous
  Country: US (occurrence: None)
  Receive Date: 20130305
  Receipt Date: 20130305
  Transmission Date: 20140127
  Serious: Yes (Other)
  Sender: FDA-Public Use
  Company Number: 163-21880-12122247

PATIENT
  Age: 68 Year
  Sex: Male

DRUGS (7)
  1. REVLIMID (LENALIDOMIDE) [Suspect]
     Indication: PLASMA CELL MYELOMA
     Route: 048
     Dates: start: 20090112
  2. ASPIRIN (ACETYLSALICYLIC ACID) [Concomitant]
  3. DEXMETHASONE SODIUM PHOSPHATE [Concomitant]
  4. POTASSIUM CHLORIDE [Concomitant]
  5. NAPROSYN (NAPROXEN) [Concomitant]
  6. VELCADE (BORTEZOMIB) [Concomitant]
  7. ZOMETA (ZOLEDRONIC ACID) [Concomitant]

REACTIONS (1)
  - Hypoaesthesia [None]
